FAERS Safety Report 25652149 (Version 1)
Quarter: 2025Q3

REPORT INFORMATION
  Report Type: Spontaneous
  Country: ID (occurrence: ID)
  Receive Date: 20250806
  Receipt Date: 20250806
  Transmission Date: 20251020
  Serious: Yes (Hospitalization, Other)
  Sender: ALEXION PHARMACEUTICALS
  Company Number: ID-AstraZeneca-CH-00869321A

PATIENT
  Age: 85 Year
  Sex: Male

DRUGS (4)
  1. LYNPARZA [Suspect]
     Active Substance: OLAPARIB
     Indication: Prostate cancer
     Dosage: 300 MILLIGRAM, BID
     Dates: start: 20240602
  2. LASIX [Concomitant]
     Active Substance: FUROSEMIDE
     Route: 065
  3. ZYTIGA [Concomitant]
     Active Substance: ABIRATERONE ACETATE
     Route: 065
  4. Dexa [Concomitant]
     Route: 065

REACTIONS (16)
  - Anaemia [Recovering/Resolving]
  - Fatigue [Recovering/Resolving]
  - Oedema [Recovering/Resolving]
  - Ulcer [Recovered/Resolved]
  - Stomatitis [Recovered/Resolved]
  - Hypotension [Unknown]
  - Decreased appetite [Recovered/Resolved]
  - Scrotal swelling [Unknown]
  - Cushingoid [Recovering/Resolving]
  - Aphthous ulcer [Recovering/Resolving]
  - Lymphadenopathy [Recovering/Resolving]
  - Hypoalbuminaemia [Recovering/Resolving]
  - Hyponatraemia [Recovering/Resolving]
  - Nausea [Recovering/Resolving]
  - Scrotal oedema [Recovering/Resolving]
  - Groin pain [Unknown]

NARRATIVE: CASE EVENT DATE: 20240605
